FAERS Safety Report 6452619-4 (Version None)
Quarter: 2009Q4

REPORT INFORMATION
  Report Type: 
  Country: None (occurrence: None)
  Receive Date: 20091124
  Receipt Date: 20091113
  Transmission Date: 20100525
  Serious: Yes (Hospitalization)
  Sender: FDA-Public Use
  Company Number: US-BIOGENIDEC-2009BI034507

PATIENT
  Age: 58 Year
  Sex: Female

DRUGS (3)
  1. AVONEX [Suspect]
     Indication: MULTIPLE SCLEROSIS
     Route: 030
     Dates: start: 20080501
  2. AVONEX [Suspect]
     Route: 030
  3. AVONEX [Suspect]
     Route: 030
     Dates: start: 20070101

REACTIONS (4)
  - DEHYDRATION [None]
  - RENAL FAILURE [None]
  - URINARY TRACT INFECTION [None]
  - VOMITING [None]
